FAERS Safety Report 17049564 (Version 1)
Quarter: 2019Q4

REPORT INFORMATION
  Report Type: Spontaneous
  Country: FR (occurrence: FR)
  Receive Date: 20191119
  Receipt Date: 20191119
  Transmission Date: 20200122
  Serious: Yes (Other)
  Sender: FDA-Public Use
  Company Number: FR-MYLANLABS-2019M1109945

PATIENT
  Age: 77 Year
  Sex: Female

DRUGS (3)
  1. TRAMADOL. [Suspect]
     Active Substance: TRAMADOL
     Indication: PRODUCT USED FOR UNKNOWN INDICATION
     Dosage: UNK
     Route: 065
  2. EXELON [Suspect]
     Active Substance: RIVASTIGMINE TARTRATE
     Indication: PRODUCT USED FOR UNKNOWN INDICATION
     Dosage: UNK
     Route: 065
  3. MIANSERINE G GAM [Suspect]
     Active Substance: MIANSERIN HYDROCHLORIDE
     Indication: PRODUCT USED FOR UNKNOWN INDICATION
     Dosage: UNK
     Route: 065

REACTIONS (9)
  - Agitation [Unknown]
  - Confusional state [Unknown]
  - Dehydration [Unknown]
  - Drug dependence [Unknown]
  - General physical health deterioration [Unknown]
  - Sedation [Unknown]
  - Chills [Unknown]
  - Headache [Unknown]
  - Aggression [Unknown]
